FAERS Safety Report 8721350 (Version 2)
Quarter: 2012Q4

REPORT INFORMATION
  Report Type: 
  Country: FR (occurrence: FR)
  Receive Date: 20120813
  Receipt Date: 20121031
  Transmission Date: 20130627
  Serious: Yes (Hospitalization)
  Sender: FDA-Public Use
  Company Number: FR-FRI-1000037621

PATIENT
  Age: 56 Year
  Sex: Male

DRUGS (6)
  1. ACAMPROSATE [Suspect]
     Indication: ALCOHOL WITHDRAWAL SYNDROME
     Dosage: 6 DF
     Route: 048
     Dates: start: 20120528, end: 20120530
  2. OXAZEPAM [Concomitant]
     Indication: ALCOHOL WITHDRAWAL SYNDROME
     Dosage: 6 DF
     Route: 048
     Dates: start: 20120528
  3. NICOBION [Concomitant]
     Indication: ALCOHOL WITHDRAWAL SYNDROME
     Dosage: 1 DF
     Route: 048
     Dates: start: 20120529
  4. BENERVA [Concomitant]
     Indication: ALCOHOL WITHDRAWAL SYNDROME
     Dosage: 1 DF
     Route: 030
     Dates: start: 20120528
  5. BECILAN [Concomitant]
     Indication: ALCOHOL WITHDRAWAL SYNDROME
     Dosage: 2 DF
     Dates: start: 20120528
  6. TERCIAN [Concomitant]
     Indication: ALCOHOL WITHDRAWAL SYNDROME
     Dosage: 1 DF
     Route: 048
     Dates: start: 20120530, end: 20120531

REACTIONS (1)
  - Hepatocellular injury [Recovered/Resolved]
